FAERS Safety Report 9888294 (Version 1)
Quarter: 2014Q1

REPORT INFORMATION
  Report Type: Spontaneous
  Country: TR (occurrence: None)
  Receive Date: 20140207
  Receipt Date: 20140207
  Transmission Date: 20141002
  Serious: Yes (Death)
  Sender: FDA-Public Use
  Company Number: UTC-044249

PATIENT
  Age: 10 Year
  Sex: Male

DRUGS (3)
  1. REMODULIN (INJECTION FOR INFUSION) (TREPROSTINIL SODIUM) [Suspect]
     Indication: PRODUCT USED FOR UNKNOWN INDICATION
     Route: 050
     Dates: start: 20140105, end: 20140129
  2. BOSENTAN (UNKNOWN) [Concomitant]
  3. SILDENAFIL (UNKNOWN) [Concomitant]

REACTIONS (2)
  - Malaise [None]
  - Disease progression [None]
